FAERS Safety Report 7347332-5 (Version None)
Quarter: 2011Q1

REPORT INFORMATION
  Report Type: 
  Country: None (occurrence: None)
  Receive Date: 20110311
  Receipt Date: 20110304
  Transmission Date: 20110831
  Serious: Yes (Hospitalization)
  Sender: FDA-Public Use
  Company Number: JP-NAPPMUNDI-MAG-2011-0001425

PATIENT
  Age: 52 Year
  Sex: Male

DRUGS (2)
  1. OXYCODONE HYDROCHLORIDE [Suspect]
     Indication: PRODUCT USED FOR UNKNOWN INDICATION
     Route: 048
  2. TS-1                               /02422201/ [Concomitant]
     Route: 048

REACTIONS (3)
  - DIARRHOEA [None]
  - CONSTIPATION [None]
  - ACUTE ABDOMEN [None]
